FAERS Safety Report 8457918-2 (Version None)
Quarter: 2012Q2

REPORT INFORMATION
  Report Type: 
  Country: None (occurrence: None)
  Receive Date: 20120622
  Receipt Date: 20120618
  Transmission Date: 20120825
  Serious: No
  Sender: FDA-Public Use
  Company Number: US-PFIZER INC-2012147272

PATIENT
  Sex: Female

DRUGS (7)
  1. BUTAZOLIDIN ALKA [Suspect]
     Dosage: UNK
  2. TOFRANIL [Suspect]
     Dosage: UNK
  3. STADOL [Suspect]
     Dosage: UNK
  4. MORPHINE SULFATE [Suspect]
     Dosage: UNK
  5. CODEINE SULFATE [Suspect]
     Dosage: UNK
  6. LIMBITROL [Suspect]
     Dosage: UNK
  7. PSEUDOEPHEDRINE HCL [Suspect]
     Dosage: UNK

REACTIONS (1)
  - DRUG HYPERSENSITIVITY [None]
